FAERS Safety Report 12569615 (Version 2)
Quarter: 2016Q3

REPORT INFORMATION
  Report Type: Spontaneous
  Country: US (occurrence: US)
  Receive Date: 20160719
  Receipt Date: 20160825
  Transmission Date: 20161109
  Serious: Yes (Other)
  Sender: FDA-Public Use
  Company Number: US-BAYER-2016-136348

PATIENT
  Age: 35 Year
  Sex: Female

DRUGS (2)
  1. MIRENA [Suspect]
     Active Substance: LEVONORGESTREL
     Indication: ABDOMINAL PAIN LOWER
  2. MIRENA [Suspect]
     Active Substance: LEVONORGESTREL
     Indication: MENORRHAGIA
     Dosage: 20 MCG/24HR, CONT
     Route: 015
     Dates: start: 20140926

REACTIONS (13)
  - Adverse drug reaction [None]
  - Abdominal pain upper [None]
  - Menorrhagia [None]
  - Menstruation irregular [None]
  - Uterine pain [None]
  - Abdominal pain lower [None]
  - Adnexa uteri pain [None]
  - Amenorrhoea [None]
  - Vaginal discharge [None]
  - Device dislocation [None]
  - Orgasm abnormal [None]
  - Dyspareunia [None]
  - Hypomenorrhoea [None]
